FAERS Safety Report 8896163 (Version 1)
Quarter: 2012Q4

REPORT INFORMATION
  Report Type: 
  Country: US (occurrence: US)
  Receive Date: 20121108
  Receipt Date: 20121108
  Transmission Date: 20130627
  Serious: No
  Sender: FDA-Public Use
  Company Number: US-B.I. PHARMACEUTICALS,INC./RIDGEFIELD-2012-BP-27286BP

PATIENT
  Age: 73 Year
  Sex: Male

DRUGS (8)
  1. SPIRIVA [Suspect]
     Indication: CHRONIC OBSTRUCTIVE PULMONARY DISEASE
     Dosage: 18 mcg
     Route: 055
     Dates: start: 201207
  2. SPIRIVA [Suspect]
     Route: 048
     Dates: start: 20121104, end: 20121104
  3. MS CONTIN [Concomitant]
     Indication: ARTHROPATHY
     Dosage: 120 mg
     Route: 048
     Dates: start: 2007
  4. NEXIUM [Concomitant]
     Indication: GASTROOESOPHAGEAL REFLUX DISEASE
     Dosage: 40 mg
     Route: 048
     Dates: start: 2007
  5. CLONAZEPAM [Concomitant]
     Indication: DEPRESSION
     Dosage: 2 mg
     Route: 048
     Dates: start: 2006
  6. LABETALOL [Concomitant]
     Indication: HYPERTENSION
     Dosage: 400 mg
     Route: 048
     Dates: start: 2008
  7. HYDROCHLOROTHIAZIDE [Concomitant]
     Indication: HYPERTENSION
     Dosage: 25 mg
     Route: 048
     Dates: start: 2007
  8. LISNOPRIL [Concomitant]
     Indication: HYPERTENSION
     Dosage: 20 mg
     Dates: start: 2007

REACTIONS (4)
  - Incorrect route of drug administration [Recovered/Resolved]
  - Abdominal pain upper [Recovered/Resolved]
  - Constipation [Not Recovered/Not Resolved]
  - Fear of eating [Recovered/Resolved]
